FAERS Safety Report 9920578 (Version 1)
Quarter: 2014Q1

REPORT INFORMATION
  Report Type: Spontaneous
  Country: US (occurrence: US)
  Receive Date: 20140224
  Receipt Date: 20140224
  Transmission Date: 20141002
  Serious: No
  Sender: FDA-Public Use
  Company Number: US-NOVEN-13US008446

PATIENT
  Sex: Female

DRUGS (7)
  1. MINIVELLE [Suspect]
     Indication: HOT FLUSH
     Dosage: 0.075 MG/DAY, TWICE WEEKLY
     Route: 062
     Dates: start: 20131213
  2. MINIVELLE [Suspect]
     Dosage: 0.0375MG/DAY, TWICE WEEKLY
     Route: 062
     Dates: start: 201306, end: 2013
  3. MINIVELLE [Suspect]
     Dosage: 0.05MG/DAY, TWICE WEEKLY
     Route: 062
     Dates: start: 2013, end: 2013
  4. MINIVELLE [Suspect]
     Dosage: 0.1MG/DAY, TWICE WEEKLY
     Route: 062
     Dates: start: 20131205, end: 20131213
  5. TESTOSTERONE [Concomitant]
     Indication: PRODUCT USED FOR UNKNOWN INDICATION
     Dosage: UNK
     Route: 061
     Dates: start: 20131210
  6. LEVOTHYROXINE [Concomitant]
     Indication: THYROID DISORDER
     Dosage: UNK
     Dates: start: 2013
  7. PROGESTERONE [Concomitant]
     Indication: PRODUCT USED FOR UNKNOWN INDICATION
     Dosage: UNK

REACTIONS (4)
  - Vaginal haemorrhage [Not Recovered/Not Resolved]
  - Drug ineffective [Recovered/Resolved]
  - Inappropriate schedule of drug administration [Recovered/Resolved]
  - Hot flush [Recovered/Resolved]
